FAERS Safety Report 12154294 (Version 1)
Quarter: 2016Q1

REPORT INFORMATION
  Report Type: Report from Study
  Country: US (occurrence: US)
  Receive Date: 20160307
  Receipt Date: 20160307
  Transmission Date: 20160526
  Serious: Yes (Other)
  Sender: FDA-Public Use
  Company Number: US-TEVA-639855USA

PATIENT
  Sex: Male

DRUGS (2)
  1. CLARAVIS [Suspect]
     Active Substance: ISOTRETINOIN
     Route: 065
     Dates: start: 20160112, end: 20160118
  2. ECSTACY [Suspect]
     Active Substance: METHYLENEDIOXYMETHAMPHETAMINE
     Route: 065

REACTIONS (3)
  - Mood altered [Not Recovered/Not Resolved]
  - Abasia [Unknown]
  - Depression [Unknown]
